FAERS Safety Report 12890573 (Version 1)
Quarter: 2016Q4

REPORT INFORMATION
  Report Type: Spontaneous
  Country: US (occurrence: US)
  Receive Date: 20161027
  Receipt Date: 20161027
  Transmission Date: 20170207
  Serious: No
  Sender: FDA-Public Use
  Company Number: US-JAZZ-2016-US-015575

PATIENT
  Sex: Female

DRUGS (32)
  1. SIROLIMUS. [Concomitant]
     Active Substance: SIROLIMUS
  2. MAGNESIUM OXIDE. [Concomitant]
     Active Substance: MAGNESIUM OXIDE
  3. NEXIUM [Concomitant]
     Active Substance: ESOMEPRAZOLE MAGNESIUM
  4. TRAZODONE HYDROCHLORIDE. [Concomitant]
     Active Substance: TRAZODONE HYDROCHLORIDE
  5. XYREM [Suspect]
     Active Substance: SODIUM OXYBATE
     Indication: SLEEP DISORDER
     Dosage: 2.25 G, BID
     Route: 048
     Dates: start: 200406, end: 200507
  6. ESTRACE [Concomitant]
     Active Substance: ESTRADIOL
  7. MAXAIR [Concomitant]
     Active Substance: PIRBUTEROL ACETATE
  8. NUVIGIL [Concomitant]
     Active Substance: ARMODAFINIL
  9. FLEXERIL [Concomitant]
     Active Substance: CYCLOBENZAPRINE HYDROCHLORIDE
  10. XYREM [Suspect]
     Active Substance: SODIUM OXYBATE
     Dosage: 4.5 G, BID
     Route: 048
     Dates: start: 200507, end: 2006
  11. XYREM [Suspect]
     Active Substance: SODIUM OXYBATE
     Dosage: 1.5 G, BID
     Route: 048
     Dates: start: 201305, end: 201305
  12. XYREM [Suspect]
     Active Substance: SODIUM OXYBATE
     Dosage: DOSE ADJUSTMENTS
     Route: 048
     Dates: start: 201305, end: 201505
  13. SIMVASTATIN. [Concomitant]
     Active Substance: SIMVASTATIN
  14. IMITREX [Concomitant]
     Active Substance: SUMATRIPTAN SUCCINATE
  15. SPIRONOLACTONE. [Concomitant]
     Active Substance: SPIRONOLACTONE
  16. CYMBALTA [Concomitant]
     Active Substance: DULOXETINE HYDROCHLORIDE
  17. MORPHINE SULF [Concomitant]
     Active Substance: MORPHINE SULFATE
  18. XYREM [Suspect]
     Active Substance: SODIUM OXYBATE
     Dosage: 4 G, FIRST DOSE
     Route: 048
     Dates: start: 201505, end: 2015
  19. ZOMIG [Concomitant]
     Active Substance: ZOLMITRIPTAN
  20. AMITIZA [Concomitant]
     Active Substance: LUBIPROSTONE
  21. DELESTROGEN [Concomitant]
     Active Substance: ESTRADIOL VALERATE
  22. POTASSIUM CITRATE. [Concomitant]
     Active Substance: POTASSIUM CITRATE
  23. VITAMIN D [Concomitant]
     Active Substance: CHOLECALCIFEROL
  24. XYREM [Suspect]
     Active Substance: SODIUM OXYBATE
     Dosage: 4.5 G, BID
     Route: 048
     Dates: start: 200703, end: 2007
  25. IMIPRAMINE HCL [Concomitant]
     Active Substance: IMIPRAMINE HYDROCHLORIDE
  26. CLONAZEPAM. [Concomitant]
     Active Substance: CLONAZEPAM
  27. XYREM [Suspect]
     Active Substance: SODIUM OXYBATE
     Dosage: 3 G, SECOND DOSE
     Route: 048
     Dates: start: 201505, end: 2015
  28. XOPENEX HFA [Concomitant]
     Active Substance: LEVALBUTEROL TARTRATE
  29. ABILIFY [Concomitant]
     Active Substance: ARIPIPRAZOLE
  30. BOTOX [Concomitant]
     Active Substance: ONABOTULINUMTOXINA
  31. DETROL [Concomitant]
     Active Substance: TOLTERODINE TARTRATE
  32. LEVOTHROID [Concomitant]
     Active Substance: LEVOTHYROXINE SODIUM

REACTIONS (1)
  - Therapeutic response unexpected [Unknown]
